FAERS Safety Report 25254599 (Version 1)
Quarter: 2025Q2

REPORT INFORMATION
  Report Type: Spontaneous
  Country: NL (occurrence: NL)
  Receive Date: 20250430
  Receipt Date: 20250430
  Transmission Date: 20250716
  Serious: Yes (Disabling, Other)
  Sender: CHEPLAPHARM
  Company Number: None

PATIENT
  Age: 86 Year
  Sex: Female
  Weight: 55.4 kg

DRUGS (10)
  1. OLANZAPINE [Suspect]
     Active Substance: OLANZAPINE
     Indication: Anxiety
     Dosage: 1 X PER DAY 1 TABLET/STRENGTH: 2.5 MILLIGRAM?DAILY DOSE: 2.5 MILLIGRAM
     Route: 048
     Dates: start: 20241123, end: 20250409
  2. OLANZAPINE [Suspect]
     Active Substance: OLANZAPINE
     Indication: Anxiety
  3. OLANZAPINE [Suspect]
     Active Substance: OLANZAPINE
     Indication: Anxiety
  4. Citalopram Omhuld [Concomitant]
     Route: 048
  5. CHOLECALCIFEROL [Concomitant]
     Active Substance: CHOLECALCIFEROL
     Route: 048
  6. HYDROCHLOROTHIAZIDE [Concomitant]
     Active Substance: HYDROCHLOROTHIAZIDE
     Route: 048
  7. LACTULOSE [Concomitant]
     Active Substance: LACTULOSE
     Route: 048
  8. OXAZEPAM [Concomitant]
     Active Substance: OXAZEPAM
     Route: 048
  9. Pantoprazole MSR [Concomitant]
     Route: 048
  10. RIVAROXABAN [Concomitant]
     Active Substance: RIVAROXABAN
     Route: 048

REACTIONS (5)
  - Tremor [Recovering/Resolving]
  - Epilepsy [Unknown]
  - Tremor [Unknown]
  - Restlessness [Unknown]
  - Loss of personal independence in daily activities [Unknown]
